FAERS Safety Report 20579925 (Version 2)
Quarter: 2022Q1

REPORT INFORMATION
  Report Type: Spontaneous
  Country: US (occurrence: US)
  Receive Date: 20220310
  Receipt Date: 20220324
  Transmission Date: 20220423
  Serious: Yes (Life-Threatening, Hospitalization)
  Sender: FDA-Public Use
  Company Number: US-TEVA-2022-US-2014082

PATIENT
  Age: 26 Year
  Sex: Male

DRUGS (3)
  1. BUPROPION [Suspect]
     Active Substance: BUPROPION
     Indication: Intentional overdose
     Route: 048
  2. PROPRANOLOL [Suspect]
     Active Substance: PROPRANOLOL HYDROCHLORIDE
     Indication: Intentional overdose
     Route: 048
  3. AMLODIPINE [Suspect]
     Active Substance: AMLODIPINE BESYLATE
     Indication: Intentional overdose
     Route: 048

REACTIONS (5)
  - Cardiogenic shock [Recovering/Resolving]
  - Vasoplegia syndrome [Recovering/Resolving]
  - Encephalopathy [Recovering/Resolving]
  - Intentional overdose [Unknown]
  - Toxicity to various agents [Unknown]
